FAERS Safety Report 6881466-4 (Version None)
Quarter: 2010Q3

REPORT INFORMATION
  Report Type: 
  Country: None (occurrence: None)
  Receive Date: 20100728
  Receipt Date: 20100723
  Transmission Date: 20110219
  Serious: Yes (Hospitalization)
  Sender: FDA-Public Use
  Company Number: CL-BRISTOL-MYERS SQUIBB COMPANY-15098882

PATIENT
  Age: 70 Year
  Sex: Male
  Weight: 66 kg

DRUGS (2)
  1. CISPLATIN [Suspect]
     Indication: GASTROOESOPHAGEAL CANCER
     Dosage: FIRST INF:23MAR10 RECENT INF:15APR10 DAY1 OF CYCLE
     Route: 042
     Dates: start: 20100323, end: 20100503
  2. XELODA [Suspect]
     Indication: GASTROOESOPHAGEAL CANCER
     Dosage: TEMPORARILY DISCONTINUED ON 29APR10 DAY 1-15 RECENT DOSE 29-APR-2010 RESTARTED ON 28-MAY-2010
     Route: 048
     Dates: start: 20100323

REACTIONS (2)
  - NEUTROPENIA [None]
  - PULMONARY EMBOLISM [None]
